FAERS Safety Report 7932137-4 (Version None)
Quarter: 2011Q4

REPORT INFORMATION
  Report Type: 
  Country: None (occurrence: None)
  Receive Date: 20111121
  Receipt Date: 20110119
  Transmission Date: 20120403
  Serious: No
  Sender: FDA-Public Use
  Company Number: US-AMGEN-USASP2011003520

PATIENT
  Age: 59 Year
  Sex: Female

DRUGS (1)
  1. ENBREL [Suspect]
     Indication: RHEUMATOID ARTHRITIS
     Dates: start: 20100723, end: 20100801

REACTIONS (7)
  - MUSCLE SPASMS [None]
  - GRIP STRENGTH DECREASED [None]
  - OROPHARYNGEAL PAIN [None]
  - DYSPNOEA [None]
  - SINUS CONGESTION [None]
  - INFLUENZA LIKE ILLNESS [None]
  - DRUG INEFFECTIVE [None]
